FAERS Safety Report 9629406 (Version 2)
Quarter: 2013Q4

REPORT INFORMATION
  Report Type: Spontaneous
  Country: US (occurrence: US)
  Receive Date: 20131017
  Receipt Date: 20131017
  Transmission Date: 20140711
  Serious: No
  Sender: FDA-Public Use
  Company Number: US-ASTRAZENECA-2013SE52470

PATIENT
  Age: 78 Year
  Sex: Female
  Weight: 67.6 kg

DRUGS (7)
  1. CRESTOR [Suspect]
     Indication: BLOOD CHOLESTEROL ABNORMAL
     Route: 048
  2. COQ10 [Concomitant]
     Dosage: UNK UNK
  3. VIT D [Concomitant]
     Dosage: UNK UNK
  4. MULTIVITAMIN [Concomitant]
     Dosage: UNK UNK
  5. MAGNESIUM [Concomitant]
     Dosage: UNK UNK
  6. VIT C [Concomitant]
     Dosage: UNK UNK
  7. FISH OIL [Concomitant]
     Dosage: UNK UNK

REACTIONS (4)
  - Myalgia [Unknown]
  - Blood cholesterol increased [Unknown]
  - Muscle spasms [Unknown]
  - Intentional drug misuse [Unknown]
